FAERS Safety Report 19193765 (Version 5)
Quarter: 2021Q2

REPORT INFORMATION
  Report Type: Spontaneous
  Country: JP (occurrence: JP)
  Receive Date: 20210429
  Receipt Date: 20210525
  Transmission Date: 20210717
  Serious: Yes (Death)
  Sender: FDA-Public Use
  Company Number: NVSJ2021JP006539

PATIENT
  Age: 89 Year
  Sex: Male

DRUGS (1)
  1. COSENTYX [Suspect]
     Active Substance: SECUKINUMAB
     Indication: PUSTULAR PSORIASIS
     Dosage: 300 MG, Q4W
     Route: 058
     Dates: start: 2017, end: 2020

REACTIONS (6)
  - Cough [Fatal]
  - Pyrexia [Fatal]
  - Chest discomfort [Fatal]
  - Interstitial lung disease [Fatal]
  - Fatigue [Fatal]
  - Dyspnoea [Fatal]

NARRATIVE: CASE EVENT DATE: 20210420
